FAERS Safety Report 11371434 (Version 1)
Quarter: 2015Q3

REPORT INFORMATION
  Report Type: Spontaneous
  Country: US (occurrence: US)
  Receive Date: 20150812
  Receipt Date: 20150812
  Transmission Date: 20151125
  Serious: Yes (Hospitalization, Other)
  Sender: FDA-Public Use
  Company Number: US-ASTRAZENECA-2015SE75962

PATIENT
  Sex: Female

DRUGS (8)
  1. VIMPAT [Suspect]
     Active Substance: LACOSAMIDE
     Indication: PRODUCT USED FOR UNKNOWN INDICATION
     Route: 065
  2. TRILEPTAL [Suspect]
     Active Substance: OXCARBAZEPINE
     Indication: PRODUCT USED FOR UNKNOWN INDICATION
     Route: 065
  3. LAMICTAL XR [Suspect]
     Active Substance: LAMOTRIGINE
     Indication: SEIZURE
     Route: 048
     Dates: start: 2010, end: 2011
  4. SEROQUEL [Suspect]
     Active Substance: QUETIAPINE FUMARATE
     Indication: PRODUCT USED FOR UNKNOWN INDICATION
     Route: 048
  5. DEPAKOTE [Suspect]
     Active Substance: DIVALPROEX SODIUM
     Indication: PRODUCT USED FOR UNKNOWN INDICATION
     Route: 065
  6. LAMICTAL XR [Suspect]
     Active Substance: LAMOTRIGINE
     Indication: SEIZURE
     Route: 048
  7. VINCAMINE [Suspect]
     Active Substance: VINCAMINE
     Indication: SEIZURE
     Route: 065
  8. THORAZINE [Concomitant]
     Active Substance: CHLORPROMAZINE

REACTIONS (14)
  - Loss of consciousness [Unknown]
  - Coordination abnormal [Unknown]
  - Fall [Unknown]
  - Depression [Unknown]
  - Balance disorder [Unknown]
  - Mania [Unknown]
  - Muscular weakness [Unknown]
  - Drug ineffective [Unknown]
  - Insomnia [Unknown]
  - Seizure [Not Recovered/Not Resolved]
  - Irritability [Unknown]
  - Confusional state [Unknown]
  - Increased tendency to bruise [Unknown]
  - Logorrhoea [Unknown]
